FAERS Safety Report 24119603 (Version 1)
Quarter: 2024Q3

REPORT INFORMATION
  Report Type: Spontaneous
  Country: US (occurrence: None)
  Receive Date: 20240718
  Receipt Date: 20240718
  Transmission Date: 20241017
  Serious: No
  Sender: Public
  Company Number: None

PATIENT
  Age: 36 Year
  Sex: Male
  Weight: 126 kg

DRUGS (1)
  1. HERBALS\MUSHROOMS UNSPECIFIED [Suspect]
     Active Substance: HERBALS\MUSHROOMS UNSPECIFIED
     Indication: Rehabilitation therapy
     Route: 048
     Dates: start: 20240718, end: 20240718

REACTIONS (5)
  - Recalled product administered [None]
  - Paranoia [None]
  - Hyperhidrosis [None]
  - Heart rate increased [None]
  - Somnolence [None]

NARRATIVE: CASE EVENT DATE: 20240718
